FAERS Safety Report 13080484 (Version 2)
Quarter: 2018Q1

REPORT INFORMATION
  Report Type: Report from Study
  Country: CA (occurrence: CA)
  Receive Date: 20170103
  Receipt Date: 20180319
  Transmission Date: 20180508
  Serious: Yes (Other)
  Sender: FDA-Public Use
  Company Number: CA-PFIZER INC-2016523517

PATIENT
  Age: 35 Year
  Sex: Female

DRUGS (4)
  1. ENTYVIO [Suspect]
     Active Substance: VEDOLIZUMAB
     Indication: CROHN^S DISEASE
     Dosage: 300 MG, UNK
     Route: 042
     Dates: start: 20160919
  2. AMITRIPTYLINE HYDROCHLORIDE. [Concomitant]
     Active Substance: AMITRIPTYLINE HYDROCHLORIDE
     Dosage: UNK
     Dates: start: 201612
  3. CITALOPRAM [Concomitant]
     Active Substance: CITALOPRAM HYDROBROMIDE
     Dosage: UNK
     Dates: start: 201612
  4. TECTA [Suspect]
     Active Substance: PANTOPRAZOLE MAGNESIUM
     Indication: OESOPHAGITIS
     Dosage: UNK
     Route: 065
     Dates: start: 2008

REACTIONS (10)
  - Crohn^s disease [Unknown]
  - Anxiety [Unknown]
  - Fatigue [Unknown]
  - Condition aggravated [Unknown]
  - Feeding disorder [Unknown]
  - Bowel movement irregularity [Unknown]
  - Mental fatigue [Unknown]
  - Drug ineffective [Unknown]
  - Abdominal pain upper [Unknown]
  - Panic attack [Unknown]
